FAERS Safety Report 11294504 (Version 1)
Quarter: 2015Q3

REPORT INFORMATION
  Report Type: Spontaneous
  Country: US (occurrence: None)
  Receive Date: 20150722
  Receipt Date: 20150722
  Transmission Date: 20151125
  Serious: Yes (Death, Hospitalization)
  Sender: FDA-Public Use
  Company Number: None

PATIENT
  Age: 57 Year
  Sex: Female
  Weight: 49.3 kg

DRUGS (2)
  1. ERBITUX [Suspect]
     Active Substance: CETUXIMAB
     Dates: end: 20150701
  2. CAMPTOSAR [Suspect]
     Active Substance: IRINOTECAN HYDROCHLORIDE
     Dates: end: 20150701

REACTIONS (5)
  - Acidosis [None]
  - Septic shock [None]
  - Blood lactic acid increased [None]
  - Intestinal ischaemia [None]
  - Large intestinal obstruction [None]

NARRATIVE: CASE EVENT DATE: 20150710
